FAERS Safety Report 15293951 (Version 1)
Quarter: 2018Q3

REPORT INFORMATION
  Report Type: Spontaneous
  Country: US (occurrence: US)
  Receive Date: 20180807
  Receipt Date: 20180807
  Transmission Date: 20181010
  Serious: No
  Sender: FDA-Public Use
  Company Number: None

PATIENT
  Age: 41 Year
  Sex: Male

DRUGS (1)
  1. COPAXONE [Suspect]
     Active Substance: GLATIRAMER ACETATE

REACTIONS (5)
  - Speech disorder [None]
  - Cognitive disorder [None]
  - Temperature intolerance [None]
  - Disease recurrence [None]
  - Pain in extremity [None]

NARRATIVE: CASE EVENT DATE: 20180807
